FAERS Safety Report 6027593-5 (Version None)
Quarter: 2009Q1

REPORT INFORMATION
  Report Type: 
  Country: None (occurrence: None)
  Receive Date: 20090105
  Receipt Date: 20081103
  Transmission Date: 20090719
  Serious: No
  Sender: FDA-Public Use
  Company Number: US-BAYER-200814269BCC

PATIENT
  Age: 32 Year
  Sex: Female
  Weight: 52 kg

DRUGS (2)
  1. ALEVE (CAPLET) [Suspect]
     Indication: TENDONITIS
     Dosage: UNIT DOSE: 220 MG
     Route: 048
     Dates: start: 20081027
  2. BIRTH CONTROL PILLS [Concomitant]

REACTIONS (3)
  - DIZZINESS [None]
  - HEADACHE [None]
  - NAUSEA [None]
